FAERS Safety Report 18585715 (Version 1)
Quarter: 2020Q4

REPORT INFORMATION
  Report Type: Spontaneous
  Country: US (occurrence: US)
  Receive Date: 20201205
  Receipt Date: 20201205
  Transmission Date: 20210114
  Serious: No
  Sender: FDA-Public Use
  Company Number: None

PATIENT
  Age: 9 Year
  Sex: Male
  Weight: 25.65 kg

DRUGS (9)
  1. BENZTROPINE MES [Suspect]
     Active Substance: BENZTROPINE MESYLATE
     Indication: TREMOR
     Route: 048
     Dates: start: 20201203, end: 20201205
  2. FLUOXETINE [Concomitant]
     Active Substance: FLUOXETINE HYDROCHLORIDE
  3. MULTIVITAMIN [Concomitant]
     Active Substance: VITAMINS
  4. DEXMETHYLPHENIDATE ER [Concomitant]
     Active Substance: DEXMETHYLPHENIDATE HYDROCHLORIDE
  5. ZYRTEC [Concomitant]
     Active Substance: CETIRIZINE HYDROCHLORIDE
  6. ARIPIPRAZOLE. [Concomitant]
     Active Substance: ARIPIPRAZOLE
  7. BENZTROPINE MES [Suspect]
     Active Substance: BENZTROPINE MESYLATE
     Indication: NERVOUSNESS
     Route: 048
     Dates: start: 20201203, end: 20201205
  8. NORDITROPIN [Concomitant]
     Active Substance: SOMATROPIN
  9. MONTELUKAST [Concomitant]
     Active Substance: MONTELUKAST SODIUM

REACTIONS (5)
  - Hallucination [None]
  - Confusional state [None]
  - Tongue movement disturbance [None]
  - Mania [None]
  - Middle insomnia [None]

NARRATIVE: CASE EVENT DATE: 20201205
